FAERS Safety Report 23827631 (Version 1)
Quarter: 2024Q2

REPORT INFORMATION
  Report Type: Spontaneous
  Country: US (occurrence: US)
  Receive Date: 20240507
  Receipt Date: 20240507
  Transmission Date: 20240716
  Serious: Yes (Life-Threatening, Hospitalization, Other)
  Sender: FDA-Public Use
  Company Number: US-TEVA-VS-3188941

PATIENT
  Age: 35 Year
  Sex: Male

DRUGS (1)
  1. METOCLOPRAMIDE [Suspect]
     Active Substance: METOCLOPRAMIDE
     Indication: Product used for unknown indication
     Route: 065
     Dates: start: 2024

REACTIONS (17)
  - Dystonia [Recovering/Resolving]
  - Depression [Recovering/Resolving]
  - Loss of personal independence in daily activities [Recovering/Resolving]
  - Irritability [Recovering/Resolving]
  - Bruxism [Recovering/Resolving]
  - Wrong technique in product usage process [Unknown]
  - Memory impairment [Recovering/Resolving]
  - Dyskinesia [Recovering/Resolving]
  - Condition aggravated [Recovering/Resolving]
  - Excessive eye blinking [Recovering/Resolving]
  - Tremor [Recovering/Resolving]
  - Muscle twitching [Recovering/Resolving]
  - Derealisation [Recovering/Resolving]
  - Near death experience [Recovering/Resolving]
  - Hallucination [Recovering/Resolving]
  - Dysphagia [Recovering/Resolving]
  - Speech disorder [Recovering/Resolving]

NARRATIVE: CASE EVENT DATE: 20240101
